FAERS Safety Report 13270891 (Version 2)
Quarter: 2017Q1

REPORT INFORMATION
  Report Type: Report from Study
  Country: None (occurrence: CA)
  Receive Date: 20170225
  Receipt Date: 20170227
  Transmission Date: 20170428
  Serious: Yes (Other)
  Sender: FDA-Public Use
  Company Number: CA-ABBVIE-17K-028-1881618-00

PATIENT
  Sex: Male

DRUGS (1)
  1. HUMIRA [Suspect]
     Active Substance: ADALIMUMAB
     Indication: RHEUMATOID ARTHRITIS
     Route: 058
     Dates: start: 20161117, end: 20170201

REACTIONS (5)
  - Urinary retention [Unknown]
  - Osteoarthritis [Not Recovered/Not Resolved]
  - Genital herpes zoster [Unknown]
  - Blood urine present [Unknown]
  - Anaemia [Unknown]

NARRATIVE: CASE EVENT DATE: 2016
